FAERS Safety Report 4416922-1 (Version None)
Quarter: 2004Q3

REPORT INFORMATION
  Report Type: 
  Country: None (occurrence: None)
  Receive Date: 20040804
  Receipt Date: 20040804
  Transmission Date: 20050211
  Serious: Yes (Other)
  Sender: FDA-Public Use
  Company Number: None

PATIENT
  Sex: Female
  Weight: 60.3284 kg

DRUGS (13)
  1. DOCETAXEL 80MG/2ML AVENTIS [Suspect]
     Indication: PANCREATIC CARCINOMA METASTATIC
     Dosage: 52MG/M2 Q 21 DAYS INTRAVENOUS
     Route: 042
     Dates: start: 20040406, end: 20040720
  2. IRINOTECAN 100MG/5ML PHARMACIA AND UPJOHN [Suspect]
     Indication: PANCREATIC CARCINOMA METASTATIC
     Dosage: 128MG/M2 Q 21-DAYS INTRAVENOUS
     Route: 042
     Dates: start: 20040406, end: 20040720
  3. NORVASC [Concomitant]
  4. PANCRELIPASE [Concomitant]
  5. ISOSORBIDE [Concomitant]
  6. TRIAMCINOLONE [Concomitant]
  7. HYDROMORPHONE HCL [Concomitant]
  8. OXYCONTIN [Concomitant]
  9. COLACE [Concomitant]
  10. RESTORIL [Concomitant]
  11. LORAZEPAM [Concomitant]
  12. IMODIUM [Concomitant]
  13. COMPAZINE [Concomitant]

REACTIONS (5)
  - NEUTROPHIL COUNT DECREASED [None]
  - PAIN [None]
  - PYREXIA [None]
  - SWELLING [None]
  - WHITE BLOOD CELL COUNT DECREASED [None]
